FAERS Safety Report 7285217-3 (Version None)
Quarter: 2011Q1

REPORT INFORMATION
  Report Type: 
  Country: None (occurrence: None)
  Receive Date: 20110210
  Receipt Date: 20110131
  Transmission Date: 20110831
  Serious: Yes (Other)
  Sender: FDA-Public Use
  Company Number: NL-JNJFOC-20110200861

PATIENT
  Sex: Female

DRUGS (3)
  1. ANTICOAGULANT [Interacting]
     Indication: ANTICOAGULANT THERAPY
     Route: 048
  2. MICONAZOLE NITRATE [Suspect]
     Route: 067
  3. MICONAZOLE NITRATE [Suspect]
     Indication: ANTIFUNGAL PROPHYLAXIS
     Route: 067

REACTIONS (2)
  - DRUG INTERACTION [None]
  - INTERNATIONAL NORMALISED RATIO INCREASED [None]
